FAERS Safety Report 5102006-6 (Version None)
Quarter: 2006Q3

REPORT INFORMATION
  Report Type: 
  Country: None (occurrence: None)
  Receive Date: 20060731
  Receipt Date: 20060526
  Transmission Date: 20061208
  Serious: No
  Sender: FDA-Public Use
  Company Number: 2006PV014590

PATIENT
  Age: 69 Year
  Sex: Female
  Weight: 80.7403 kg

DRUGS (6)
  1. BYETTA [Suspect]
     Indication: DIABETES MELLITUS NON-INSULIN-DEPENDENT
     Dosage: 5 MCG;BID;SC
     Route: 058
     Dates: start: 20060408
  2. EFFEXOR [Suspect]
     Indication: DEPRESSION
     Dates: start: 20060519, end: 20060519
  3. GLUCOPHAGE [Concomitant]
  4. AMARYL [Concomitant]
  5. METOPROLOL [Concomitant]
  6. LEXAPRO [Concomitant]

REACTIONS (3)
  - NAUSEA [None]
  - WEIGHT DECREASED [None]
  - WEIGHT INCREASED [None]
